FAERS Safety Report 7319684-3 (Version None)
Quarter: 2011Q1

REPORT INFORMATION
  Report Type: 
  Country: None (occurrence: None)
  Receive Date: 20110228
  Receipt Date: 20100728
  Transmission Date: 20110831
  Serious: No
  Sender: FDA-Public Use
  Company Number: A0872732A

PATIENT
  Sex: Female

DRUGS (4)
  1. LAMICTAL [Suspect]
     Indication: BIPOLAR DISORDER
     Dosage: 100MG PER DAY
     Route: 048
     Dates: start: 20100625, end: 20100719
  2. ZOLOFT [Concomitant]
  3. VISTARIL [Concomitant]
  4. AMBIEN [Concomitant]

REACTIONS (3)
  - MUSCLE TWITCHING [None]
  - RASH [None]
  - TREMOR [None]
